FAERS Safety Report 7243444-5 (Version None)
Quarter: 2011Q1

REPORT INFORMATION
  Report Type: 
  Country: None (occurrence: None)
  Receive Date: 20110119
  Receipt Date: 20110119
  Transmission Date: 20110831
  Serious: Yes (Hospitalization)
  Sender: FDA-Public Use
  Company Number: None

PATIENT
  Sex: Male
  Weight: 96.6 kg

DRUGS (9)
  1. PROLOSEC. [Concomitant]
  2. GEMCITABINE HYDROCHLORIDE [Suspect]
     Dosage: 1600 MG
  3. CARBIDOPA AND LEVODOPA [Concomitant]
  4. TARCEVA [Suspect]
     Dosage: 100 MG
  5. CREON [Concomitant]
  6. NIASPAN [Concomitant]
  7. CLONAZEPAM [Concomitant]
  8. HUMULIN R 100 UNITS/ML [Concomitant]
  9. OMEPRAZOLE [Concomitant]

REACTIONS (9)
  - DEHYDRATION [None]
  - VOMITING [None]
  - SYNCOPE [None]
  - CHILLS [None]
  - PYREXIA [None]
  - PULMONARY EMBOLISM [None]
  - DIARRHOEA [None]
  - NAUSEA [None]
  - ASTHENIA [None]
